FAERS Safety Report 4959689-0 (Version None)
Quarter: 2006Q1

REPORT INFORMATION
  Report Type: 
  Country: None (occurrence: None)
  Receive Date: 20060328
  Receipt Date: 20060313
  Transmission Date: 20060701
  Serious: Yes (Other)
  Sender: FDA-Public Use
  Company Number: 2006035079

PATIENT
  Age: 78 Year
  Sex: Male
  Weight: 77.1115 kg

DRUGS (3)
  1. VIAGRA [Suspect]
     Indication: ERECTILE DYSFUNCTION
     Dosage: AS NECESSARY
     Dates: end: 20060101
  2. TAMSULOSIN HCL [Suspect]
     Indication: PROSTATE EXAMINATION ABNORMAL
     Dosage: 1 IN 1 D
     Dates: start: 20050901
  3. TYLENOL [Concomitant]

REACTIONS (7)
  - BLOOD PRESSURE INCREASED [None]
  - DRUG EFFECT DECREASED [None]
  - DRUG INTERACTION [None]
  - FLUSHING [None]
  - HERNIA REPAIR [None]
  - PARADOXICAL DRUG REACTION [None]
  - PROSTATE EXAMINATION ABNORMAL [None]
